FAERS Safety Report 15425311 (Version 1)
Quarter: 2018Q3

REPORT INFORMATION
  Report Type: Spontaneous
  Country: IN (occurrence: IN)
  Receive Date: 20180925
  Receipt Date: 20180925
  Transmission Date: 20181010
  Serious: Yes (Other)
  Sender: FDA-Public Use
  Company Number: IN-SILVERGATE PHARMACEUTICALS, INC.-2018SIL00049

PATIENT
  Age: 49 Year
  Sex: Female

DRUGS (1)
  1. METHOTREXATE. [Suspect]
     Active Substance: METHOTREXATE
     Indication: OCULAR LYMPHOMA
     Dosage: UNK, 1X/WEEK (INTRAVITREAL, BOTH EYES)
     Route: 031

REACTIONS (2)
  - Corneal disorder [Recovered/Resolved]
  - Ocular toxicity [Recovered/Resolved]
